FAERS Safety Report 18628272 (Version 1)
Quarter: 2020Q4

REPORT INFORMATION
  Report Type: Spontaneous
  Country: US (occurrence: US)
  Receive Date: 20201217
  Receipt Date: 20201217
  Transmission Date: 20210114
  Serious: Yes (Life-Threatening)
  Sender: FDA-Public Use
  Company Number: None

PATIENT
  Age: 34 Year
  Sex: Male
  Weight: 106.7 kg

DRUGS (1)
  1. VANCOMYCIN [Suspect]
     Active Substance: VANCOMYCIN
     Indication: INFECTION
     Route: 042
     Dates: start: 20201002, end: 20201012

REACTIONS (4)
  - Drug reaction with eosinophilia and systemic symptoms [None]
  - Leukocytosis [None]
  - Pyrexia [None]
  - Rash [None]

NARRATIVE: CASE EVENT DATE: 20201022
